FAERS Safety Report 23299985 (Version 2)
Quarter: 2023Q4

REPORT INFORMATION
  Report Type: Spontaneous
  Country: HR (occurrence: HR)
  Receive Date: 20231215
  Receipt Date: 20231218
  Transmission Date: 20240110
  Serious: Yes (Other)
  Sender: FDA-Public Use
  Company Number: HR-ABBVIE-5532224

PATIENT
  Age: 27 Year
  Sex: Female

DRUGS (1)
  1. RINVOQ [Suspect]
     Active Substance: UPADACITINIB
     Indication: Dermatitis atopic
     Route: 048
     Dates: start: 20230401

REACTIONS (1)
  - Cervix carcinoma [Unknown]

NARRATIVE: CASE EVENT DATE: 20231101
